FAERS Safety Report 14240468 (Version 6)
Quarter: 2019Q1

REPORT INFORMATION
  Report Type: Report from Study
  Country: TR (occurrence: TR)
  Receive Date: 20171130
  Receipt Date: 20190122
  Transmission Date: 20190417
  Serious: Yes (Hospitalization)
  Sender: FDA-Public Use
  Company Number: TR-CELGENEUS-TUR-20171108201

PATIENT
  Age: 74 Year
  Sex: Female
  Weight: 51.2 kg

DRUGS (12)
  1. SANELOC [Concomitant]
     Active Substance: METOPROLOL
     Indication: ATRIAL FIBRILLATION
     Dosage: 100 MILLIGRAM
     Route: 048
     Dates: start: 20171120, end: 20171121
  2. CONCOR [Concomitant]
     Active Substance: BISOPROLOL FUMARATE
     Indication: ATRIAL FIBRILLATION
     Dosage: 5 MILLIGRAM
     Route: 048
     Dates: start: 20171121
  3. HYDROXUREA [Concomitant]
     Indication: ACUTE MYELOID LEUKAEMIA
     Route: 065
     Dates: start: 20171123, end: 20171127
  4. HYDROXUREA [Concomitant]
     Indication: DIFFERENTIATION SYNDROME
     Route: 065
     Dates: start: 20171106, end: 20171114
  5. BISOPROLOL [Concomitant]
     Active Substance: BISOPROLOL
     Indication: DIFFERENTIATION SYNDROME
     Dosage: 5 MILLIGRAM
     Route: 048
  6. AG-221 [Suspect]
     Active Substance: ENASIDENIB
     Indication: ACUTE MYELOID LEUKAEMIA
     Dosage: 100 MILLIGRAM
     Route: 048
     Dates: start: 20171106, end: 20171123
  7. FUROSEMIDE. [Concomitant]
     Active Substance: FUROSEMIDE
     Indication: DIFFERENTIATION SYNDROME
     Route: 041
  8. OXYGEN. [Concomitant]
     Active Substance: OXYGEN
     Indication: DIFFERENTIATION SYNDROME
     Dosage: 2-5 L/MIN
     Route: 065
     Dates: start: 20171123, end: 20171202
  9. SANELOC [Concomitant]
     Active Substance: METOPROLOL
     Dosage: 50 MILLIGRAM
     Route: 048
     Dates: end: 20171120
  10. FUROSEMIDE. [Concomitant]
     Active Substance: FUROSEMIDE
     Indication: PLEURAL EFFUSION
     Dosage: 60 MILLIGRAM
     Route: 041
     Dates: start: 20171124, end: 20171215
  11. HYDROXUREA [Concomitant]
     Route: 065
     Dates: start: 20171016
  12. AG-221 [Suspect]
     Active Substance: ENASIDENIB
     Dosage: 100 MILLIGRAM
     Route: 048
     Dates: start: 20171009

REACTIONS (7)
  - Tumour lysis syndrome [Recovered/Resolved]
  - Pericardial effusion [Not Recovered/Not Resolved]
  - Nausea [Recovered/Resolved]
  - Differentiation syndrome [Recovered/Resolved with Sequelae]
  - Pleural effusion [Not Recovered/Not Resolved]
  - Pyrexia [Recovered/Resolved]
  - Diarrhoea [Recovered/Resolved]

NARRATIVE: CASE EVENT DATE: 20171016
